FAERS Safety Report 21257886 (Version 5)
Quarter: 2022Q4

REPORT INFORMATION
  Report Type: Report from Study
  Country: US (occurrence: US)
  Receive Date: 20220826
  Receipt Date: 20221122
  Transmission Date: 20230112
  Serious: Yes (Other)
  Sender: FDA-Public Use
  Company Number: US-NOVARTISPH-NVSC2022US189198

PATIENT
  Age: 9 Year
  Sex: Male

DRUGS (1)
  1. VIJOICE [Suspect]
     Active Substance: ALPELISIB
     Indication: PIK3CA related overgrowth spectrum
     Dosage: 50 MG, QD
     Route: 048
     Dates: start: 20220809

REACTIONS (11)
  - Skin malformation [Unknown]
  - Exophthalmos [Unknown]
  - Eye haemorrhage [Unknown]
  - Pain [Unknown]
  - Crying [Unknown]
  - Screaming [Unknown]
  - Eye swelling [Unknown]
  - Hypervigilance [Unknown]
  - Blood pressure abnormal [Unknown]
  - Muscle spasms [Unknown]
  - Headache [Unknown]

NARRATIVE: CASE EVENT DATE: 20220809
